FAERS Safety Report 14830950 (Version 1)
Quarter: 2018Q2

REPORT INFORMATION
  Report Type: Spontaneous
  Country: AT (occurrence: AT)
  Receive Date: 20180430
  Receipt Date: 20180430
  Transmission Date: 20180711
  Serious: Yes (Hospitalization)
  Sender: FDA-Public Use
  Company Number: PHHY2018AT076034

PATIENT
  Age: 86 Year
  Sex: Male
  Weight: 90 kg

DRUGS (4)
  1. AMYKAL [Concomitant]
     Indication: PRODUCT USED FOR UNKNOWN INDICATION
     Route: 065
  2. ALLOPURINOL. [Concomitant]
     Active Substance: ALLOPURINOL
     Indication: PRODUCT USED FOR UNKNOWN INDICATION
     Route: 065
  3. BISOPROLOL 1A PHARMA [Suspect]
     Active Substance: BISOPROLOL
     Indication: HEART RATE INCREASED
     Dosage: 10 MG, QD (1-0.5-0.5)
     Route: 065
     Dates: start: 20171120
  4. BISOPROLOL 1A PHARMA [Suspect]
     Active Substance: BISOPROLOL
     Dosage: 0.5 DF, QD
     Route: 065

REACTIONS (1)
  - Diarrhoea [Not Recovered/Not Resolved]
